FAERS Safety Report 18611900 (Version 2)
Quarter: 2024Q3

REPORT INFORMATION
  Report Type: Spontaneous
  Country: US (occurrence: US)
  Receive Date: 20201214
  Receipt Date: 20240912
  Transmission Date: 20241016
  Serious: Yes (Other)
  Sender: PFIZER
  Company Number: US-PFIZER INC-2020487631

PATIENT
  Age: 3 Decade
  Sex: Female

DRUGS (2)
  1. HYDROCORTISONE [Suspect]
     Active Substance: HYDROCORTISONE\HYDROCORTISONE ACETATE
     Dosage: UNK
  2. HYDROCORTISONE [Suspect]
     Active Substance: HYDROCORTISONE\HYDROCORTISONE ACETATE
     Dosage: UNK
     Dates: start: 2020, end: 2020

REACTIONS (8)
  - Adrenocortical insufficiency acute [Unknown]
  - Intentional product use issue [Unknown]
  - Depressed mood [Unknown]
  - Rash [Unknown]
  - Headache [Unknown]
  - Brain fog [Unknown]
  - Hypotension [Unknown]
  - Product complaint [Unknown]

NARRATIVE: CASE EVENT DATE: 20200101
